FAERS Safety Report 5801802-7 (Version None)
Quarter: 2008Q3

REPORT INFORMATION
  Report Type: 
  Country: None (occurrence: None)
  Receive Date: 20080707
  Receipt Date: 20080623
  Transmission Date: 20090109
  Serious: Yes (Death, Disabling)
  Sender: FDA-Public Use
  Company Number: US-SANOFI-SYNTHELABO-A03200802488

PATIENT
  Sex: Male

DRUGS (2)
  1. PLAVIX [Suspect]
     Indication: CARDIOVASCULAR DISORDER
     Route: 048
  2. PLAVIX [Suspect]
     Indication: PROPHYLAXIS
     Route: 048

REACTIONS (10)
  - ABASIA [None]
  - BACK PAIN [None]
  - CEREBROVASCULAR ACCIDENT [None]
  - CHRONIC OBSTRUCTIVE PULMONARY DISEASE [None]
  - CONFUSIONAL STATE [None]
  - CONTUSION [None]
  - DIZZINESS [None]
  - INFLUENZA LIKE ILLNESS [None]
  - JOINT SWELLING [None]
  - LUNG DISORDER [None]
